FAERS Safety Report 10697068 (Version 1)
Quarter: 2015Q1

REPORT INFORMATION
  Report Type: Spontaneous
  Country: NO (occurrence: NO)
  Receive Date: 20150108
  Receipt Date: 20150108
  Transmission Date: 20150721
  Serious: Yes (Life-Threatening)
  Sender: FDA-Public Use
  Company Number: NO-ACCORD-027896

PATIENT
  Age: 70 Year
  Sex: Female

DRUGS (7)
  1. ASASANTIN RETARD [Concomitant]
     Active Substance: ASPIRIN\DIPYRIDAMOLE
     Indication: THROMBOSIS PROPHYLAXIS
     Route: 048
     Dates: start: 20111221
  2. ENALAPRIL [Concomitant]
     Active Substance: ENALAPRIL
     Indication: HYPERTENSION
     Route: 048
     Dates: start: 20120206
  3. PARACETAMOL [Concomitant]
     Active Substance: ACETAMINOPHEN
     Indication: PAIN
     Route: 048
     Dates: start: 20141007
  4. KLEXANE [Concomitant]
     Active Substance: ENOXAPARIN
     Indication: THROMBOSIS PROPHYLAXIS
     Route: 058
     Dates: start: 20141007
  5. METHOTREXATE [Suspect]
     Active Substance: METHOTREXATE
     Indication: PRODUCT USED FOR UNKNOWN INDICATION
     Dosage: METHOTREXATE 20 MG ADMINISTERED BY MISTAKE FOR TWO DAYS INSTEAD OF SEROXAT 20 MG
     Route: 048
     Dates: start: 20141012, end: 20141014
  6. CEFOTAXIME [Concomitant]
     Active Substance: CEFOTAXIME\CEFOTAXIME SODIUM
     Indication: INFECTION
     Route: 042
     Dates: start: 20141007, end: 20141024
  7. NORVASC [Concomitant]
     Active Substance: AMLODIPINE BESYLATE
     Indication: HYPERTENSION
     Route: 048

REACTIONS (7)
  - Sepsis [Recovering/Resolving]
  - Respiratory distress [Recovering/Resolving]
  - Critical illness polyneuropathy [Recovering/Resolving]
  - Neutropenia [Recovering/Resolving]
  - Stomatitis [Recovering/Resolving]
  - Thrombocytopenia [Recovering/Resolving]
  - Wrong drug administered [Unknown]

NARRATIVE: CASE EVENT DATE: 20141012
